FAERS Safety Report 16833286 (Version 3)
Quarter: 2019Q4

REPORT INFORMATION
  Report Type: Spontaneous
  Country: MX (occurrence: MX)
  Receive Date: 20190920
  Receipt Date: 20191028
  Transmission Date: 20200122
  Serious: Yes (Hospitalization, Other)
  Sender: FDA-Public Use
  Company Number: MX-ALVOGEN-2019-ALVOGEN-101405

PATIENT
  Age: 21287 Day
  Sex: Male
  Weight: 88 kg

DRUGS (24)
  1. RIVAROXABAN [Concomitant]
     Active Substance: RIVAROXABAN
     Indication: ANTICOAGULANT THERAPY
  2. ATORVASTATIN CALCIUM. [Concomitant]
     Active Substance: ATORVASTATIN CALCIUM
     Indication: CARDIAC DISORDER
     Route: 048
     Dates: start: 201702
  3. SACUBITRIL/VALSARTAN [Suspect]
     Active Substance: SACUBITRIL\VALSARTAN
     Indication: CARDIAC FAILURE
     Route: 048
     Dates: start: 201802
  4. SACUBITRIL/VALSARTAN [Suspect]
     Active Substance: SACUBITRIL\VALSARTAN
     Indication: BLOOD PRESSURE ABNORMAL
     Dosage: MORE THAN 10 YEARS AGO?SACUBITRIL: 49.0MG VALSARTAN: 51.0MG
     Route: 048
     Dates: start: 201805
  5. METOPROLOL. [Concomitant]
     Active Substance: METOPROLOL
     Indication: ATRIAL PRESSURE
  6. SACUBITRIL/VALSARTAN [Suspect]
     Active Substance: SACUBITRIL\VALSARTAN
     Indication: HYPERTENSION
     Route: 048
     Dates: start: 201802
  7. SACUBITRIL/VALSARTAN [Suspect]
     Active Substance: SACUBITRIL\VALSARTAN
     Indication: HYPERTENSION
     Dosage: MORE THAN 10 YEARS AGO
     Dates: start: 201702
  8. FUROSEMIDE. [Concomitant]
     Active Substance: FUROSEMIDE
     Indication: PRODUCT USED FOR UNKNOWN INDICATION
  9. BUMETANIDE. [Concomitant]
     Active Substance: BUMETANIDE
     Indication: PRODUCT USED FOR UNKNOWN INDICATION
  10. SACUBITRIL/VALSARTAN [Suspect]
     Active Substance: SACUBITRIL\VALSARTAN
     Indication: CARDIAC FAILURE
     Dosage: MORE THAN 10 YEARS AGO
     Route: 048
     Dates: start: 201702
  11. SACUBITRIL/VALSARTAN [Suspect]
     Active Substance: SACUBITRIL\VALSARTAN
     Indication: CARDIAC FAILURE
     Dosage: MORE THAN 10 YEARS AGO?SACUBITRIL: 49.0MG VALSARTAN: 51.0MG
     Route: 048
     Dates: start: 201805
  12. SACUBITRIL/VALSARTAN [Suspect]
     Active Substance: SACUBITRIL\VALSARTAN
     Indication: CARDIAC DISORDER
     Dosage: MORE THAN 10 YEARS AGO?SACUBITRIL: 49.0MG VALSARTAN: 51.0MG
     Route: 048
     Dates: start: 201805
  13. SACUBITRIL/VALSARTAN [Suspect]
     Active Substance: SACUBITRIL\VALSARTAN
     Indication: CARDIAC DISORDER
     Dosage: MORE THAN 10 YEARS AGO?SACUBITRIL: 49.0MG VALSARTAN: 51.0MG
     Route: 048
     Dates: start: 201802
  14. LINAGLIPTIN [Concomitant]
     Active Substance: LINAGLIPTIN
     Indication: PRODUCT USED FOR UNKNOWN INDICATION
  15. SACUBITRIL/VALSARTAN [Suspect]
     Active Substance: SACUBITRIL\VALSARTAN
     Indication: CARDIAC FAILURE
     Dosage: MORE THAN 10 YEARS AGO?SACUBITRIL: 49.0MG VALSARTAN: 51.0MG
     Route: 048
     Dates: start: 201805
  16. SPIRONOLACTONE. [Concomitant]
     Active Substance: SPIRONOLACTONE
     Indication: PRODUCT USED FOR UNKNOWN INDICATION
  17. ACETYLSALICYLIC ACID [Concomitant]
     Active Substance: ASPIRIN
     Indication: PRODUCT USED FOR UNKNOWN INDICATION
  18. SACUBITRIL/VALSARTAN [Suspect]
     Active Substance: SACUBITRIL\VALSARTAN
     Indication: BLOOD PRESSURE ABNORMAL
     Route: 048
     Dates: start: 201702
  19. SACUBITRIL/VALSARTAN [Suspect]
     Active Substance: SACUBITRIL\VALSARTAN
     Indication: CARDIAC DISORDER
     Dosage: MORE THAN 10 YEARS AGO?SACUBITRIL: 49.0MG VALSARTAN: 51.0MG
     Route: 048
     Dates: start: 201702
  20. ATENOLOL. [Suspect]
     Active Substance: ATENOLOL
     Indication: DYSPNOEA
     Dosage: 0.5DF UNKNOWN
     Route: 048
  21. SACUBITRIL/VALSARTAN [Suspect]
     Active Substance: SACUBITRIL\VALSARTAN
     Indication: CARDIAC FAILURE
     Dosage: MORE THAN 10 YEARS AGO?SACUBITRIL: 49.0MG VALSARTAN: 51.0MG
     Route: 048
     Dates: start: 201702
  22. SACUBITRIL/VALSARTAN [Suspect]
     Active Substance: SACUBITRIL\VALSARTAN
     Indication: BLOOD PRESSURE ABNORMAL
     Route: 048
     Dates: start: 201802
  23. SACUBITRIL/VALSARTAN [Suspect]
     Active Substance: SACUBITRIL\VALSARTAN
     Indication: CARDIAC FAILURE
     Dosage: MORE THAN 10 YEARS AGO
     Route: 048
     Dates: start: 201802
  24. SACUBITRIL/VALSARTAN [Suspect]
     Active Substance: SACUBITRIL\VALSARTAN
     Indication: HYPERTENSION
     Dosage: MORE THAN 10 YEARS AGO?SACUBITRIL: 49.0MG VALSARTAN: 51.0MG
     Route: 048
     Dates: start: 201805

REACTIONS (38)
  - Hyperhidrosis [Unknown]
  - Loss of consciousness [Unknown]
  - Blood potassium decreased [Recovered/Resolved]
  - Respiratory disorder [Recovered/Resolved]
  - Abdominal distension [Unknown]
  - Muscle contractions involuntary [Not Recovered/Not Resolved]
  - Cardiac disorder [Not Recovered/Not Resolved]
  - Cardiomegaly [Unknown]
  - Blood pressure decreased [Recovered/Resolved]
  - Eye swelling [Unknown]
  - Limb discomfort [Unknown]
  - Chest discomfort [Unknown]
  - Asthenia [Recovered/Resolved]
  - Headache [Not Recovered/Not Resolved]
  - Joint swelling [Unknown]
  - Movement disorder [Not Recovered/Not Resolved]
  - Diaphragmatic disorder [Not Recovered/Not Resolved]
  - Syncope [Unknown]
  - Glucose tolerance impaired [Not Recovered/Not Resolved]
  - Influenza [Unknown]
  - Tendonitis [Not Recovered/Not Resolved]
  - Weight increased [Not Recovered/Not Resolved]
  - Renal disorder [Unknown]
  - Fatigue [Not Recovered/Not Resolved]
  - Arrhythmia [Recovered/Resolved]
  - Hypersensitivity [Unknown]
  - Arthralgia [Unknown]
  - Visual impairment [Unknown]
  - Head discomfort [Unknown]
  - Fall [Unknown]
  - Feeling abnormal [Unknown]
  - Disease progression [Unknown]
  - Restlessness [Not Recovered/Not Resolved]
  - Insomnia [Not Recovered/Not Resolved]
  - Micturition frequency decreased [Unknown]
  - Prostatic disorder [Unknown]
  - Micturition disorder [Unknown]
  - Dyspnoea [Unknown]

NARRATIVE: CASE EVENT DATE: 20180417
